FAERS Safety Report 10101397 (Version 2)
Quarter: 2014Q2

REPORT INFORMATION
  Report Type: Spontaneous
  Country: ES (occurrence: ES)
  Receive Date: 20140424
  Receipt Date: 20140515
  Transmission Date: 20141212
  Serious: Yes (Hospitalization)
  Sender: FDA-Public Use
  Company Number: ES-CELGENEUS-144-21660-14042148

PATIENT
  Age: 68 Year
  Sex: Female

DRUGS (15)
  1. ABRAXANE [Suspect]
     Indication: BREAST CANCER
     Route: 041
     Dates: start: 20131021, end: 20140123
  2. PERTUZUMAB [Suspect]
     Indication: BREAST CANCER
     Route: 041
     Dates: start: 20131021, end: 20131021
  3. PERTUZUMAB [Suspect]
     Route: 041
     Dates: start: 20131112, end: 20131202
  4. TRASTUZUMAB [Suspect]
     Indication: BREAST CANCER
     Route: 041
     Dates: start: 20131021, end: 20131021
  5. TRASTUZUMAB [Suspect]
     Route: 041
     Dates: start: 20131112, end: 20131202
  6. INSULIN GLARGINE [Concomitant]
     Indication: PRODUCT USED FOR UNKNOWN INDICATION
     Route: 065
     Dates: start: 2003
  7. METFORMIN [Concomitant]
     Indication: PRODUCT USED FOR UNKNOWN INDICATION
     Route: 065
     Dates: start: 2003
  8. ACECLOFENAC [Concomitant]
     Indication: PRODUCT USED FOR UNKNOWN INDICATION
     Route: 065
     Dates: start: 2000
  9. OMEPRAZOLE [Concomitant]
     Indication: PROPHYLAXIS
     Dosage: 20 MILLIGRAM
     Route: 065
     Dates: start: 2000
  10. FUROSEMIDE [Concomitant]
     Indication: PROPHYLAXIS
     Dosage: 80 MILLIGRAM
     Route: 065
     Dates: start: 2003
  11. HYDROXYZINE HYDROCHLORIDE [Concomitant]
     Indication: PRODUCT USED FOR UNKNOWN INDICATION
     Dosage: 50 MILLIGRAM
     Route: 065
     Dates: start: 2012
  12. HYDROXYZINE HYDROCHLORIDE [Concomitant]
     Dosage: 75 MILLIGRAM
     Route: 065
     Dates: start: 20131022, end: 20131031
  13. HYDROXYZINE HYDROCHLORIDE [Concomitant]
     Dosage: 75 MILLIGRAM
     Route: 065
  14. RACECADOTRIL [Concomitant]
     Indication: PROPHYLAXIS
     Dosage: 100 MILLIGRAM
     Route: 065
     Dates: start: 20131202
  15. HIDROSMIN [Concomitant]
     Indication: PROPHYLAXIS
     Dosage: 600 MILLIGRAM
     Route: 065
     Dates: start: 20140120

REACTIONS (1)
  - Pemphigus [Recovered/Resolved]
